FAERS Safety Report 13001131 (Version 2)
Quarter: 2017Q1

REPORT INFORMATION
  Report Type: Spontaneous
  Country: CN (occurrence: CN)
  Receive Date: 20161206
  Receipt Date: 20170113
  Transmission Date: 20170428
  Serious: Yes (Other)
  Sender: FDA-Public Use
  Company Number: CN-VALIDUS PHARMACEUTICALS LLC-CN-2016VAL003093

PATIENT
  Sex: Female

DRUGS (2)
  1. LOTENSIN [Suspect]
     Active Substance: BENAZEPRIL HYDROCHLORIDE
     Indication: HYPERTENSION
     Dosage: 2 DF, QD (UNDER AN EMPTY STOMACH EVERY MORNING)
     Route: 065
  2. LOTENSIN [Suspect]
     Active Substance: BENAZEPRIL HYDROCHLORIDE
     Dosage: 2 DF, QD
     Route: 048

REACTIONS (2)
  - Blood pressure systolic increased [Unknown]
  - Drug ineffective [Unknown]
